FAERS Safety Report 9237180 (Version 1)
Quarter: 2013Q2

REPORT INFORMATION
  Report Type: Spontaneous
  Country: US (occurrence: US)
  Receive Date: 20130417
  Receipt Date: 20130417
  Transmission Date: 20140414
  Serious: Yes (Other)
  Sender: FDA-Public Use
  Company Number: US-PFIZER INC-2013117884

PATIENT
  Age: 53 Year
  Sex: Male
  Weight: 51.7 kg

DRUGS (1)
  1. CELEBREX [Suspect]
     Indication: ARTHRITIS
     Dosage: UNK
     Dates: start: 2012

REACTIONS (1)
  - Ulcer haemorrhage [Unknown]
